FAERS Safety Report 7953610 (Version 3)
Quarter: 2014Q1

REPORT INFORMATION
  Report Type: Spontaneous
  Country: US (occurrence: US)
  Receive Date: 20110520
  Receipt Date: 20140312
  Transmission Date: 20141002
  Serious: No
  Sender: FDA-Public Use
  Company Number: US-ASTRAZENECA-2011SE15486

PATIENT
  Age: 88 Year
  Sex: Female

DRUGS (10)
  1. VIMOVO [Suspect]
     Indication: PAIN
     Dosage: 500/20 MG DAILY
     Route: 048
     Dates: start: 20110308
  2. SYMBICORT PMDI [Suspect]
     Indication: CHRONIC OBSTRUCTIVE PULMONARY DISEASE
     Dosage: 320 MCG BID
     Route: 055
     Dates: start: 2008
  3. SYMBICORT PMDI [Suspect]
     Indication: ASTHMA
     Dosage: 320 MCG BID
     Route: 055
     Dates: start: 2008
  4. AMITIZA [Concomitant]
     Indication: CONSTIPATION
  5. SIMVASTATIN [Concomitant]
     Indication: BLOOD CHOLESTEROL ABNORMAL
  6. TRIAMTERENE [Concomitant]
     Indication: OEDEMA
  7. ATENOLOL [Concomitant]
     Indication: HYPERTENSION
  8. TESSALON PERLES [Concomitant]
  9. DARVOCET [Concomitant]
     Indication: PAIN
  10. ANOTHER INHALER [Concomitant]
     Indication: ASTHMA

REACTIONS (9)
  - Cough [Not Recovered/Not Resolved]
  - Nasopharyngitis [Unknown]
  - Fatigue [Unknown]
  - Pneumonia [Unknown]
  - Dyspnoea [Unknown]
  - Constipation [Unknown]
  - Bronchospasm [Not Recovered/Not Resolved]
  - Dyspnoea [Not Recovered/Not Resolved]
  - Asthma [Unknown]
